FAERS Safety Report 5678214-2 (Version None)
Quarter: 2008Q1

REPORT INFORMATION
  Report Type: 
  Country: None (occurrence: None)
  Receive Date: 20080320
  Receipt Date: 20080306
  Transmission Date: 20080703
  Serious: Yes (Hospitalization)
  Sender: FDA-Public Use
  Company Number: A-CH2007-18734

PATIENT
  Age: 50 Year
  Sex: Female

DRUGS (7)
  1. TRACLEER [Suspect]
     Indication: PULMONARY HYPERTENSION
     Dosage: 62.5 MG, BID, ORAL
     Route: 048
     Dates: start: 20071121, end: 20071204
  2. TRACLEER [Suspect]
     Indication: PULMONARY HYPERTENSION
     Dosage: 62.5 MG, BID, ORAL
     Route: 048
     Dates: start: 20071214, end: 20080125
  3. FOLIC ACID [Concomitant]
  4. MTV (VITAMINS NOS) [Concomitant]
  5. FLUOXETINE [Concomitant]
  6. ALPRAZOLAM [Concomitant]
  7. BERAPROST (BERAPROST) [Concomitant]

REACTIONS (15)
  - ANAEMIA [None]
  - ARTHRALGIA [None]
  - BLOOD CULTURE POSITIVE [None]
  - ENDOCARDITIS [None]
  - EPISTAXIS [None]
  - FATIGUE [None]
  - HAEMOPTYSIS [None]
  - HEADACHE [None]
  - MULTIPLE MYELOMA [None]
  - MUSCULOSKELETAL PAIN [None]
  - PYREXIA [None]
  - STREPTOCOCCAL INFECTION [None]
  - THROMBOCYTOPENIA [None]
  - WEIGHT DECREASED [None]
  - WHITE BLOOD CELLS URINE POSITIVE [None]
